FAERS Safety Report 4353430-0 (Version None)
Quarter: 2004Q2

REPORT INFORMATION
  Report Type: 
  Country: None (occurrence: None)
  Receive Date: 20040429
  Receipt Date: 20040415
  Transmission Date: 20050107
  Serious: Yes (Other)
  Sender: FDA-Public Use
  Company Number: 200410206BCA

PATIENT
  Age: 56 Year
  Sex: Female

DRUGS (8)
  1. FLEBOGAMMA [Suspect]
     Indication: BONE MARROW TRANSPLANT
     Dosage: 55 G, INTRAVENOUS
     Route: 042
     Dates: start: 20040223
  2. FLEBOGAMMA [Suspect]
  3. FLEBOGAMMA [Suspect]
  4. ACYCLOVIR [Concomitant]
  5. LOSEC [Concomitant]
  6. SULCRATE [Concomitant]
  7. ATOVAQUONE [Concomitant]
  8. URSO FALK [Concomitant]

REACTIONS (5)
  - GRAFT VERSUS HOST DISEASE [None]
  - HAEMOCHROMATOSIS [None]
  - HAEMOSIDEROSIS [None]
  - HEPATITIS [None]
  - HEPATITIS B ANTIBODY POSITIVE [None]
